FAERS Safety Report 9692266 (Version 1)
Quarter: 2013Q4

REPORT INFORMATION
  Report Type: Spontaneous
  Country: GB (occurrence: GB)
  Receive Date: 20131118
  Receipt Date: 20131118
  Transmission Date: 20140711
  Serious: Yes (Other)
  Sender: FDA-Public Use
  Company Number: GB-BRISTOL-MYERS SQUIBB COMPANY-19786979

PATIENT
  Age: 76 Year
  Sex: Female
  Weight: 55 kg

DRUGS (6)
  1. ARIPIPRAZOLE [Suspect]
     Indication: BIPOLAR I DISORDER
     Route: 048
     Dates: start: 20131025, end: 20131025
  2. CARBIMAZOLE [Interacting]
     Indication: HYPERTHYROIDISM
     Route: 048
  3. ASPIRIN [Concomitant]
  4. FUROSEMIDE [Concomitant]
  5. RAMIPRIL [Concomitant]
  6. SIMVASTATIN [Concomitant]

REACTIONS (6)
  - Hyperhidrosis [Unknown]
  - Dizziness [Unknown]
  - Malaise [Recovering/Resolving]
  - Nausea [Recovering/Resolving]
  - Fatigue [Unknown]
  - Drug interaction [Unknown]
